FAERS Safety Report 23444131 (Version 1)
Quarter: 2024Q1

REPORT INFORMATION
  Report Type: Spontaneous
  Country: CA (occurrence: CA)
  Receive Date: 20240125
  Receipt Date: 20240125
  Transmission Date: 20240410
  Serious: Yes (Hospitalization, Other)
  Sender: FDA-Public Use
  Company Number: CA-FreseniusKabi-FK202401408

PATIENT
  Age: 65 Year
  Sex: Male

DRUGS (1)
  1. ETOPOSIDE [Suspect]
     Active Substance: ETOPOSIDE
     Indication: Small cell lung cancer
     Dosage: DOSAGE FORM:  LIQUID INTRAVENOUS
     Route: 065

REACTIONS (2)
  - Acute coronary syndrome [Recovering/Resolving]
  - Acute myocardial infarction [Recovering/Resolving]
